FAERS Safety Report 8265787 (Version 2)
Quarter: 2013Q3

REPORT INFORMATION
  Report Type: Spontaneous
  Country: FR (occurrence: FR)
  Receive Date: 20111129
  Receipt Date: 20130724
  Transmission Date: 20140515
  Serious: Yes (Hospitalization)
  Sender: FDA-Public Use
  Company Number: FR-BIOGENIDEC-2011BI044332

PATIENT
  Age: 55 Year
  Sex: Female

DRUGS (2)
  1. AVONEX [Suspect]
     Indication: MULTIPLE SCLEROSIS
     Route: 030
     Dates: start: 20110127, end: 20110803
  2. SOLUMEDROL [Concomitant]
     Indication: MULTIPLE SCLEROSIS RELAPSE
     Dates: start: 20110126, end: 20110130

REACTIONS (2)
  - Abnormal behaviour [Recovered/Resolved]
  - Epilepsy [Recovered/Resolved]
